FAERS Safety Report 19470161 (Version 1)
Quarter: 2021Q2

REPORT INFORMATION
  Report Type: Spontaneous
  Country: JP (occurrence: JP)
  Receive Date: 20210628
  Receipt Date: 20210628
  Transmission Date: 20210717
  Serious: Yes (Other)
  Sender: FDA-Public Use
  Company Number: JP-UCBSA-2021030423

PATIENT
  Age: 9 Decade
  Sex: Male

DRUGS (4)
  1. YOKUKANSAN [Suspect]
     Active Substance: HERBALS
     Indication: PSYCHIATRIC SYMPTOM
     Dosage: 7.5 GRAMS PER DAY
  2. LEVODOPA/CARBIDOPA [Concomitant]
     Active Substance: CARBIDOPA\LEVODOPA
     Indication: PARKINSON^S DISEASE
     Dosage: UNK, 2X/DAY (BID)
  3. NEUPRO [Suspect]
     Active Substance: ROTIGOTINE
     Indication: PARKINSON^S DISEASE
     Dosage: UNK
     Route: 062
  4. NEUPRO [Suspect]
     Active Substance: ROTIGOTINE
     Dosage: 20.25 MILLIGRAM, ONCE DAILY (QD), 9 MG QD
     Route: 062

REACTIONS (5)
  - Fall [Recovering/Resolving]
  - Pseudoaldosteronism [Unknown]
  - Blood pressure increased [Recovering/Resolving]
  - Hallucination [Recovered/Resolved]
  - Asthenia [Recovering/Resolving]
